FAERS Safety Report 4982240-6 (Version None)
Quarter: 2006Q2

REPORT INFORMATION
  Report Type: 
  Country: None (occurrence: None)
  Receive Date: 20060419
  Receipt Date: 20060413
  Transmission Date: 20061013
  Serious: Yes (Hospitalization)
  Sender: FDA-Public Use
  Company Number: Q06-023

PATIENT
  Sex: Male
  Weight: 82 kg

DRUGS (15)
  1. TAXOTERE [Suspect]
     Indication: PROSTATE CANCER
     Dosage: 70 MG/M2 Q3W
     Dates: end: 20060324
  2. SAMARIUM [Suspect]
     Dosage: 0.5 MCI/KG Q6W
     Dates: start: 20060324
  3. ASPIRIN [Concomitant]
  4. PLAVIX [Concomitant]
  5. TOPROL-XL [Concomitant]
  6. DIOVAN [Concomitant]
  7. ELAVIL [Concomitant]
  8. PREDNISONE TAB [Concomitant]
  9. GLUCOTROL [Concomitant]
  10. DEXAMETHASONE [Concomitant]
  11. DARBEPOETIN [Concomitant]
  12. LUPRON [Concomitant]
  13. M.V.I. [Concomitant]
  14. METOPROLOL SUCCINATE [Concomitant]
  15. LASIX [Concomitant]

REACTIONS (7)
  - ANAEMIA [None]
  - DISEASE PROGRESSION [None]
  - ELECTROCARDIOGRAM ST SEGMENT DEPRESSION [None]
  - HAEMATURIA [None]
  - HYPOTENSION [None]
  - SINUS TACHYCARDIA [None]
  - TROPONIN INCREASED [None]
